FAERS Safety Report 6610863-7 (Version None)
Quarter: 2010Q1

REPORT INFORMATION
  Report Type: 
  Country: None (occurrence: None)
  Receive Date: 20100219
  Receipt Date: 20100204
  Transmission Date: 20100710
  Serious: Yes (Hospitalization)
  Sender: FDA-Public Use
  Company Number: IDA-00330

PATIENT
  Age: 76 Year
  Sex: Male

DRUGS (4)
  1. INDERAL [Suspect]
     Route: 048
     Dates: start: 20000101, end: 20091229
  2. SPIRIVA [Concomitant]
  3. SIMVASTATIN [Concomitant]
  4. VENTOLIN [Concomitant]

REACTIONS (2)
  - OBSTRUCTIVE AIRWAYS DISORDER [None]
  - PERIPHERAL ISCHAEMIA [None]
